FAERS Safety Report 9741696 (Version 4)
Quarter: 2014Q2

REPORT INFORMATION
  Report Type: Spontaneous
  Country: GB (occurrence: GB)
  Receive Date: 20131210
  Receipt Date: 20140530
  Transmission Date: 20141212
  Serious: Yes (Hospitalization)
  Sender: FDA-Public Use
  Company Number: GB-JNJFOC-20131017806

PATIENT
  Age: 72 Year
  Sex: Male
  Weight: 83.6 kg

DRUGS (8)
  1. STELARA [Suspect]
     Indication: PSORIASIS
     Route: 058
     Dates: start: 20131024
  2. STELARA [Suspect]
     Indication: PSORIASIS
     Route: 058
     Dates: start: 20121206
  3. STELARA [Suspect]
     Indication: ERYTHRODERMIC PSORIASIS
     Route: 058
     Dates: start: 20131024
  4. STELARA [Suspect]
     Indication: ERYTHRODERMIC PSORIASIS
     Route: 058
     Dates: start: 20121206
  5. DIGOXIN [Concomitant]
     Indication: ATRIAL FIBRILLATION
     Route: 065
     Dates: start: 20121006
  6. TILDIEM [Concomitant]
     Indication: ATRIAL FIBRILLATION
     Route: 065
     Dates: start: 20121018
  7. ASPIRIN [Concomitant]
     Indication: ATRIAL FIBRILLATION
     Route: 065
     Dates: start: 20121006
  8. CHLORPHENAMINE [Concomitant]
     Indication: URTICARIA
     Route: 065

REACTIONS (5)
  - Erythrodermic psoriasis [Recovering/Resolving]
  - Psoriasis [Unknown]
  - Discomfort [Unknown]
  - Insomnia [Unknown]
  - Off label use [Unknown]
